FAERS Safety Report 13452313 (Version 4)
Quarter: 2017Q3

REPORT INFORMATION
  Report Type: Spontaneous
  Country: US (occurrence: US)
  Receive Date: 20170418
  Receipt Date: 20170710
  Transmission Date: 20171127
  Serious: Yes (Death, Congenital Anomaly, Other)
  Sender: FDA-Public Use
  Company Number: PHEH2017US011133

PATIENT
  Sex: Male

DRUGS (3)
  1. ZOFRAN ODT [Suspect]
     Active Substance: ONDANSETRON HYDROCHLORIDE
     Indication: FOETAL EXPOSURE DURING PREGNANCY
     Dosage: MOTHER DOSE: 01 DF, Q6H
     Route: 064
  2. ZOFRAN [Suspect]
     Active Substance: ONDANSETRON HYDROCHLORIDE
     Indication: FOETAL EXPOSURE DURING PREGNANCY
     Route: 064
  3. ZOFRAN [Suspect]
     Active Substance: ONDANSETRON HYDROCHLORIDE
     Indication: FOETAL EXPOSURE DURING PREGNANCY
     Dosage: MOTHER DOSE: 04 MG PER 02 ML, UNK
     Route: 064

REACTIONS (26)
  - Bicuspid aortic valve [Unknown]
  - Heart disease congenital [Unknown]
  - Haemorrhage intracranial [Unknown]
  - Hyperbilirubinaemia neonatal [Unknown]
  - Ventricular hypoplasia [Unknown]
  - Atrial septal defect [Unknown]
  - Oedema neonatal [Unknown]
  - Cyanosis neonatal [Unknown]
  - Aorta hypoplasia [Unknown]
  - Renal failure [Unknown]
  - Neonatal tachypnoea [Unknown]
  - Premature baby [Unknown]
  - Injury [Unknown]
  - Bacterial sepsis [Fatal]
  - Hypoplastic left heart syndrome [Unknown]
  - Atelectasis neonatal [Unknown]
  - Tricuspid valve incompetence [Unknown]
  - Multiple organ dysfunction syndrome [Fatal]
  - Low cardiac output syndrome [Fatal]
  - Ventricular septal defect [Unknown]
  - Shone complex [Unknown]
  - Cardiomegaly [Unknown]
  - Neonatal hyponatraemia [Unknown]
  - Gastrointestinal haemorrhage [Unknown]
  - Aortic valve atresia [Unknown]
  - Foetal exposure during pregnancy [Unknown]
